FAERS Safety Report 8299869 (Version 6)
Quarter: 2012Q4

REPORT INFORMATION
  Report Type: 
  Country: US (occurrence: US)
  Receive Date: 20111219
  Receipt Date: 20120919
  Transmission Date: 20130627
  Serious: Yes (Other)
  Sender: FDA-Public Use
  Company Number: US-PFIZER INC-2011306847

PATIENT
  Age: 51 Year
  Sex: Male
  Weight: 74.83 kg

DRUGS (4)
  1. GEODON [Suspect]
     Indication: BIPOLAR DISORDER
     Dosage: 20 mg, 1x/day
     Route: 048
     Dates: start: 20111212, end: 201112
  2. GEODON [Suspect]
     Dosage: 80 mg, 2x/day
     Route: 048
     Dates: start: 201112
  3. PAXIL [Concomitant]
     Indication: DEPRESSION
     Dosage: UNK
     Dates: start: 1996
  4. LITHIUM [Concomitant]
     Indication: BIPOLAR DISORDER
     Dosage: UNK
     Dates: start: 2006

REACTIONS (10)
  - Depression [Not Recovered/Not Resolved]
  - Panic attack [Not Recovered/Not Resolved]
  - Anxiety [Recovered/Resolved]
  - Feeling abnormal [Recovered/Resolved]
  - Speech disorder [Recovered/Resolved]
  - Paraesthesia [Recovered/Resolved]
  - Feeling jittery [Recovered/Resolved]
  - Crying [Not Recovered/Not Resolved]
  - Circumstance or information capable of leading to medication error [Unknown]
  - Physical product label issue [Unknown]
